FAERS Safety Report 14572434 (Version 3)
Quarter: 2018Q2

REPORT INFORMATION
  Report Type: Spontaneous
  Country: US (occurrence: US)
  Receive Date: 20180226
  Receipt Date: 20180615
  Transmission Date: 20180711
  Serious: No
  Sender: FDA-Public Use
  Company Number: US-PFIZER INC-2018077378

PATIENT
  Age: 58 Year
  Sex: Female

DRUGS (1)
  1. IBRANCE [Suspect]
     Active Substance: PALBOCICLIB
     Indication: BREAST CANCER FEMALE
     Dosage: 125 MG, DAILY
     Route: 048
     Dates: start: 20180129

REACTIONS (5)
  - Fatigue [Unknown]
  - Pain [Unknown]
  - Lip dry [Unknown]
  - Asthenia [Unknown]
  - Alopecia [Unknown]

NARRATIVE: CASE EVENT DATE: 20180220
